FAERS Safety Report 5773704-6 (Version None)
Quarter: 2008Q2

REPORT INFORMATION
  Report Type: 
  Country: None (occurrence: None)
  Receive Date: 20080616
  Receipt Date: 20080611
  Transmission Date: 20081010
  Serious: Yes (Life-Threatening)
  Sender: FDA-Public Use
  Company Number: JP-BRISTOL-MYERS SQUIBB COMPANY-14223671

PATIENT
  Age: 34 Year
  Sex: Male

DRUGS (3)
  1. LASTET [Suspect]
     Indication: EXTRAGONADAL PRIMARY GERM CELL CANCER
     Dosage: 1ST+2ND CYCLE:180MG/DAY, TOTAL 900MG BETWEEN 26JUN-2JUL + 25JUL-29JUL IN 2006
     Dates: start: 20060830, end: 20060903
  2. BRIPLATIN [Suspect]
     Indication: EXTRAGONADAL PRIMARY GERM CELL CANCER
     Dosage: 1ST+2ND CYCLE:35MG/DAY,TOTAL 175MG BETWEEN 26JUN-2JUL06 + 25JUL-29JUL06.
     Dates: start: 20060830, end: 20060903
  3. BLEOMYCIN HCL [Suspect]
     Indication: EXTRAGONADAL PRIMARY GERM CELL CANCER
     Dosage: 1ST+2ND CYCLE:30MG/DAY, TOTAL 90MG BETWEEN 26JUN-12JUL06 + 25JUL-14AUG06.
     Route: 042
     Dates: start: 20060830, end: 20060903

REACTIONS (1)
  - INTERSTITIAL LUNG DISEASE [None]
